FAERS Safety Report 7676145-X (Version None)
Quarter: 2011Q3

REPORT INFORMATION
  Report Type: 
  Country: None (occurrence: None)
  Receive Date: 20110811
  Receipt Date: 20110801
  Transmission Date: 20111222
  Serious: Yes (Other)
  Sender: FDA-Public Use
  Company Number: US-JNJFOC-20110801857

PATIENT
  Sex: Male
  Weight: 72.58 kg

DRUGS (2)
  1. DURAGESIC-100 [Suspect]
     Indication: INTERVERTEBRAL DISC DEGENERATION
     Route: 062
     Dates: start: 20110701
  2. DURAGESIC-100 [Suspect]
     Route: 062
     Dates: end: 20110701

REACTIONS (12)
  - HICCUPS [None]
  - VOMITING [None]
  - MALAISE [None]
  - DRUG INEFFECTIVE [None]
  - INTERVERTEBRAL DISC PROTRUSION [None]
  - WITHDRAWAL SYNDROME [None]
  - CHEST PAIN [None]
  - FEELING ABNORMAL [None]
  - WRONG TECHNIQUE IN DRUG USAGE PROCESS [None]
  - FATIGUE [None]
  - INSOMNIA [None]
  - TREATMENT NONCOMPLIANCE [None]
